FAERS Safety Report 4277538-3 (Version None)
Quarter: 2004Q1

REPORT INFORMATION
  Report Type: 
  Country: None (occurrence: None)
  Receive Date: 20040121
  Receipt Date: 20040116
  Transmission Date: 20041129
  Serious: Yes (Death)
  Sender: FDA-Public Use
  Company Number: US-JNJFOC-20031105264

PATIENT
  Age: 78 Year
  Sex: Male

DRUGS (15)
  1. SPORANOX [Suspect]
     Indication: FUNGAL INFECTION
     Dosage: 100 MG, 2 IN 1 DAY, ORAL
     Route: 048
     Dates: start: 20030519, end: 20030826
  2. PREDNISONE [Concomitant]
  3. LASIX [Concomitant]
  4. ZOCOR [Concomitant]
  5. K-DUR 10 [Concomitant]
  6. ZANTAC (RANITDINE HYDROCHLORIDE) [Concomitant]
  7. METOPROLOL [Concomitant]
  8. METFORMIN HCL [Concomitant]
  9. GLIPIZIDE [Concomitant]
  10. SONATA [Concomitant]
  11. ACETYLSALICYLIC ACID SRT [Concomitant]
  12. IRON [Concomitant]
  13. ASTELIN (AZELASTINE HYDROCHLORIDE) [Concomitant]
  14. COSPOT (OPHTALMOLOGICALS) OPHTHALMIC [Concomitant]
  15. POTASSIUM PERMANGANATE [Concomitant]

REACTIONS (1)
  - DEATH [None]
